FAERS Safety Report 11052015 (Version 1)
Quarter: 2015Q2

REPORT INFORMATION
  Report Type: Spontaneous
  Country: CH (occurrence: CH)
  Receive Date: 20150421
  Receipt Date: 20150421
  Transmission Date: 20150821
  Serious: Yes (Hospitalization, Other)
  Sender: FDA-Public Use
  Company Number: CH-TEVA-554904ISR

PATIENT
  Age: 61 Year
  Sex: Male

DRUGS (9)
  1. ESOMEPRAZOLE [Interacting]
     Active Substance: ESOMEPRAZOLE
     Dosage: PERMANENT MEDICATION
     Route: 065
  2. METAMIZOLE [Interacting]
     Active Substance: METAMIZOLE
     Dosage: PERMANENT MEDICATION
     Route: 065
  3. SODIUM PICOSULFATE [Interacting]
     Active Substance: SODIUM PICOSULFATE
     Dosage: PERMANENT MEDICATION
     Route: 065
  4. MACROGOL [Interacting]
     Active Substance: POLYETHYLENE GLYCOLS
     Dosage: PERMANENT MEDICATION
     Route: 065
  5. PHENPROCOUMON [Interacting]
     Active Substance: PHENPROCOUMON
     Dosage: PERMANENT MEDICATION
     Route: 065
  6. METHADONE [Interacting]
     Active Substance: METHADONE HYDROCHLORIDE
     Dosage: PERMANENT MEDICATION
     Route: 065
  7. METOCLOPRAMIDE. [Interacting]
     Active Substance: METOCLOPRAMIDE
     Dosage: PERMANENT MEDICATION
     Route: 065
  8. QUETIAPINE [Interacting]
     Active Substance: QUETIAPINE
     Dosage: AS RESERVE MEDICATION
     Route: 065
  9. AMLODIPINE [Suspect]
     Active Substance: AMLODIPINE BESYLATE
     Dosage: PERMANENT MEDICATION
     Route: 065

REACTIONS (11)
  - Constipation [Unknown]
  - Delirium [Unknown]
  - Dyspnoea exertional [Unknown]
  - Pain [Unknown]
  - Confusional state [Unknown]
  - Dehydration [Unknown]
  - Burnout syndrome [Unknown]
  - Fatigue [Unknown]
  - Disorientation [Unknown]
  - Drug interaction [Unknown]
  - General physical health deterioration [Unknown]
